FAERS Safety Report 15532202 (Version 10)
Quarter: 2020Q2

REPORT INFORMATION
  Report Type: Spontaneous
  Country: CA (occurrence: CA)
  Receive Date: 20181019
  Receipt Date: 20200629
  Transmission Date: 20200713
  Serious: Yes (Other)
  Sender: FDA-Public Use
  Company Number: CA-CELLTRION INC.-2018CA017888

PATIENT

DRUGS (17)
  1. INFLECTRA [Suspect]
     Active Substance: INFLIXIMAB-DYYB
     Dosage: 5 MG/KG EVERY 8 WEEKS THEREAFTER
     Route: 042
     Dates: start: 20180615, end: 20180615
  2. INFLECTRA [Suspect]
     Active Substance: INFLIXIMAB-DYYB
     Dosage: 5 MG/KG EVERY 8 WEEKS THEREAFTER
     Route: 042
     Dates: start: 20181005, end: 20181005
  3. INFLECTRA [Suspect]
     Active Substance: INFLIXIMAB-DYYB
     Dosage: 5 MG/KG EVERY 8 WEEKS THEREAFTER
     Route: 042
     Dates: start: 20190906
  4. INFLECTRA [Suspect]
     Active Substance: INFLIXIMAB-DYYB
     Dosage: 5 MG/KG EVERY 8 WEEKS THEREAFTER
     Route: 042
     Dates: start: 20190125, end: 20190125
  5. PREDNISONE. [Concomitant]
     Active Substance: PREDNISONE
     Dosage: UNK
     Dates: start: 20180112
  6. INFLECTRA [Suspect]
     Active Substance: INFLIXIMAB-DYYB
     Dosage: 5 MG/KG EVERY 8 WEEKS THEREAFTER
     Route: 042
     Dates: start: 20190712, end: 20190712
  7. INFLECTRA [Suspect]
     Active Substance: INFLIXIMAB-DYYB
     Dosage: 5 MG/KG EVERY 8 WEEKS THEREAFTER
     Route: 042
     Dates: start: 20191101, end: 20191101
  8. INFLECTRA [Suspect]
     Active Substance: INFLIXIMAB-DYYB
     Dosage: 300 MG, EVERY 8 WEEKS
     Route: 042
     Dates: start: 20200221
  9. INFLECTRA [Suspect]
     Active Substance: INFLIXIMAB-DYYB
     Indication: COLITIS ULCERATIVE
     Dosage: 10 MG/KG AT WEEK 0, 2 AND 6
     Route: 042
     Dates: start: 20180112, end: 20180112
  10. INFLECTRA [Suspect]
     Active Substance: INFLIXIMAB-DYYB
     Dosage: 5 MG/KG EVERY 8 WEEKS THEREAFTER
     Route: 042
     Dates: start: 20180420, end: 20180420
  11. INFLECTRA [Suspect]
     Active Substance: INFLIXIMAB-DYYB
     Dosage: 300 MG, EVERY 8 WEEKS
     Route: 042
     Dates: start: 20191227, end: 20191227
  12. INFLECTRA [Suspect]
     Active Substance: INFLIXIMAB-DYYB
     Dosage: 10 MG/KG AT WEEK 0, 2 AND 6
     Route: 042
     Dates: start: 20180226, end: 20180226
  13. INFLECTRA [Suspect]
     Active Substance: INFLIXIMAB-DYYB
     Dosage: 5 MG/KG EVERY 8 WEEKS THEREAFTER
     Route: 042
     Dates: start: 20180810, end: 20180810
  14. INFLECTRA [Suspect]
     Active Substance: INFLIXIMAB-DYYB
     Dosage: 5 MG/KG EVERY 8 WEEKS THEREAFTER
     Route: 042
     Dates: start: 20181130, end: 20181130
  15. INFLECTRA [Suspect]
     Active Substance: INFLIXIMAB-DYYB
     Dosage: 5 MG/KG EVERY 8 WEEKS THEREAFTER
     Route: 042
     Dates: start: 20190322, end: 20190322
  16. INFLECTRA [Suspect]
     Active Substance: INFLIXIMAB-DYYB
     Dosage: 5 MG/KG EVERY 8 WEEKS THEREAFTER
     Route: 042
     Dates: start: 20190517, end: 20190517
  17. AZATHIOPRINE. [Concomitant]
     Active Substance: AZATHIOPRINE
     Dosage: 50 MG, UNK
     Dates: start: 20180323

REACTIONS (22)
  - Pain [Unknown]
  - Stress [Unknown]
  - Abdominal pain upper [Recovered/Resolved]
  - Weight increased [Unknown]
  - Cough [Unknown]
  - Condition aggravated [Recovered/Resolved]
  - Heart rate irregular [Unknown]
  - Rash pruritic [Unknown]
  - Urinary tract infection [Recovered/Resolved]
  - Skin plaque [Unknown]
  - Arthralgia [Recovered/Resolved]
  - Epistaxis [Unknown]
  - Intentional product use issue [Unknown]
  - Drug ineffective [Recovered/Resolved]
  - Mouth ulceration [Unknown]
  - Nasopharyngitis [Unknown]
  - Fatigue [Not Recovered/Not Resolved]
  - Abdominal pain [Recovered/Resolved]
  - Tongue ulceration [Unknown]
  - Off label use [Unknown]
  - Amenorrhoea [Unknown]
  - Infusion site erythema [Recovering/Resolving]

NARRATIVE: CASE EVENT DATE: 201801
